FAERS Safety Report 24692282 (Version 1)
Quarter: 2024Q4

REPORT INFORMATION
  Report Type: Spontaneous
  Country: CN (occurrence: CN)
  Receive Date: 20241203
  Receipt Date: 20241203
  Transmission Date: 20250115
  Serious: Yes (Hospitalization)
  Sender: PAREXEL
  Company Number: CN-SHANGHAI JUNSHI BIOSCIENCES CO., LTD.-CN2024012190

PATIENT

DRUGS (2)
  1. TORIPALIMAB [Suspect]
     Active Substance: TORIPALIMAB
     Indication: Bladder transitional cell carcinoma
     Dosage: 240 MG
     Route: 041
     Dates: start: 20240924, end: 20240924
  2. PACLITAXEL [Suspect]
     Active Substance: PACLITAXEL
     Indication: Bladder transitional cell carcinoma
     Dosage: 330 MG
     Route: 041
     Dates: start: 20240924, end: 20240924

REACTIONS (1)
  - Myelosuppression [Recovering/Resolving]

NARRATIVE: CASE EVENT DATE: 20240929
